FAERS Safety Report 24372172 (Version 1)
Quarter: 2024Q3

REPORT INFORMATION
  Report Type: Spontaneous
  Country: AR (occurrence: AR)
  Receive Date: 20240927
  Receipt Date: 20240927
  Transmission Date: 20241017
  Serious: Yes (Death, Other)
  Sender: AMGEN
  Company Number: AR-AMGEN-ARGSP2024187592

PATIENT
  Age: 43 Year
  Sex: Female

DRUGS (1)
  1. NPLATE [Suspect]
     Active Substance: ROMIPLOSTIM
     Indication: Platelet count abnormal
     Dosage: 3 MICROGRAM DAY
     Route: 065
     Dates: start: 20240805, end: 20240819

REACTIONS (3)
  - Death [Fatal]
  - Septic shock [Unknown]
  - Off label use [Unknown]

NARRATIVE: CASE EVENT DATE: 20240805
